FAERS Safety Report 10733573 (Version 2)
Quarter: 2015Q1

REPORT INFORMATION
  Report Type: Spontaneous
  Country: DE (occurrence: DE)
  Receive Date: 20150123
  Receipt Date: 20150319
  Transmission Date: 20150721
  Serious: Yes (Hospitalization)
  Sender: FDA-Public Use
  Company Number: DE-TEVA-534305GER

PATIENT
  Sex: Female

DRUGS (1)
  1. CIPROFLOXACIN ABZ 500 MG FILMTABLETTEN [Suspect]
     Active Substance: CIPROFLOXACIN HYDROCHLORIDE
     Indication: CYSTITIS NONINFECTIVE
     Route: 048
     Dates: start: 20140420, end: 20140424

REACTIONS (19)
  - Decreased appetite [Unknown]
  - Nail discomfort [Unknown]
  - Arthralgia [Unknown]
  - Tendon pain [Unknown]
  - Nausea [Unknown]
  - Drug intolerance [Unknown]
  - Diarrhoea [Unknown]
  - Visual acuity reduced [Unknown]
  - Headache [Unknown]
  - Abdominal pain [Unknown]
  - Alopecia [Unknown]
  - Rash [Unknown]
  - Hyperhidrosis [Unknown]
  - Chills [Unknown]
  - Restlessness [Unknown]
  - Faeces discoloured [Unknown]
  - Arrhythmia [Unknown]
  - Sleep disorder [Unknown]
  - Mental disorder [Unknown]

NARRATIVE: CASE EVENT DATE: 2014
